FAERS Safety Report 7289654-2 (Version None)
Quarter: 2011Q1

REPORT INFORMATION
  Report Type: 
  Country: None (occurrence: None)
  Receive Date: 20110214
  Receipt Date: 20110204
  Transmission Date: 20110831
  Serious: Yes (Hospitalization, Other)
  Sender: FDA-Public Use
  Company Number: US-BIOGENIDEC-2010BI029416

PATIENT
  Sex: Female

DRUGS (1)
  1. AVONEX [Suspect]
     Indication: MULTIPLE SCLEROSIS
     Route: 030
     Dates: start: 20020801

REACTIONS (6)
  - NEOPLASM MALIGNANT [None]
  - UTERINE LEIOMYOMA [None]
  - PAIN [None]
  - MASS [None]
  - INJECTION SITE HAEMATOMA [None]
  - INFLUENZA LIKE ILLNESS [None]
